FAERS Safety Report 4496519-8 (Version None)
Quarter: 2004Q4

REPORT INFORMATION
  Report Type: 
  Country: None (occurrence: None)
  Receive Date: 20041109
  Receipt Date: 20041022
  Transmission Date: 20050328
  Serious: Yes (Hospitalization)
  Sender: FDA-Public Use
  Company Number: GB-JNJFOC-20041006996

PATIENT
  Sex: Female

DRUGS (11)
  1. REMICADE [Suspect]
     Indication: DRUG USE FOR UNKNOWN INDICATION
     Route: 042
  2. METHOTREXATE [Concomitant]
  3. FOLIC ACID [Concomitant]
  4. FERROUS GLUCONATE [Concomitant]
  5. PANTOPRAZOLE [Concomitant]
  6. PIZOTIFEN [Concomitant]
  7. DIAZEPAM [Concomitant]
  8. CAFERGOT [Concomitant]
  9. CAFERGOT [Concomitant]
  10. TRAMADOL [Concomitant]
  11. CIPRAMIL [Concomitant]

REACTIONS (2)
  - METASTASIS [None]
  - PITUITARY TUMOUR BENIGN [None]
